FAERS Safety Report 20161176 (Version 2)
Quarter: 2022Q1

REPORT INFORMATION
  Report Type: Spontaneous
  Country: US (occurrence: US)
  Receive Date: 20211208
  Receipt Date: 20220112
  Transmission Date: 20220423
  Serious: Yes (Other)
  Sender: FDA-Public Use
  Company Number: US-NOVARTISTESTPH-NVSC2021US281223

PATIENT
  Age: 53 Year
  Sex: Male

DRUGS (2)
  1. VOLTAREN [Suspect]
     Active Substance: DICLOFENAC SODIUM
     Indication: Arthritis
     Dosage: 1 DOSAGE FORM, QD
     Route: 065
  2. VOLTAREN [Suspect]
     Active Substance: DICLOFENAC SODIUM
     Dosage: 150 G
     Route: 065

REACTIONS (10)
  - Blister [Unknown]
  - Joint microhaemorrhage [Unknown]
  - Haemarthrosis [Unknown]
  - Joint swelling [Unknown]
  - Scab [Unknown]
  - Insomnia [Unknown]
  - Pruritus [Unknown]
  - Urticaria [Recovered/Resolved]
  - Condition aggravated [Unknown]
  - Incorrect dose administered [Unknown]
